FAERS Safety Report 22226962 (Version 1)
Quarter: 2023Q2

REPORT INFORMATION
  Report Type: Report from Study
  Country: CR (occurrence: CR)
  Receive Date: 20230419
  Receipt Date: 20230419
  Transmission Date: 20230722
  Serious: Yes (Other)
  Sender: FDA-Public Use
  Company Number: CR-BAYER-2023A050243

PATIENT
  Age: 66 Year
  Sex: Female

DRUGS (1)
  1. RIVAROXABAN [Suspect]
     Active Substance: RIVAROXABAN
     Indication: Anticoagulant therapy
     Dosage: 20 MG
     Route: 048

REACTIONS (5)
  - Thrombosis [Unknown]
  - Phlebitis [Unknown]
  - Thrombosis [Unknown]
  - Phlebitis [Unknown]
  - Varicose vein [Unknown]

NARRATIVE: CASE EVENT DATE: 20220901
